FAERS Safety Report 23522992 (Version 2)
Quarter: 2024Q1

REPORT INFORMATION
  Report Type: Spontaneous
  Country: FR (occurrence: None)
  Receive Date: 20240214
  Receipt Date: 20240321
  Transmission Date: 20240409
  Serious: Yes (Death, Other)
  Sender: FDA-Public Use
  Company Number: 2024A037398

PATIENT
  Age: 5 Day
  Sex: Female
  Weight: 2.8 kg

DRUGS (1)
  1. BEYFORTUS [Suspect]
     Active Substance: NIRSEVIMAB-ALIP
     Indication: Antiviral prophylaxis
     Dosage: 50 MG, TOTAL50.0MG ONCE/SINGLE ADMINISTRATION
     Route: 030
     Dates: start: 20231206, end: 20231206

REACTIONS (7)
  - Sudden infant death syndrome [Fatal]
  - Parvovirus B19 infection [Fatal]
  - Corneal oedema [Unknown]
  - Epistaxis [Unknown]
  - Vomiting [Unknown]
  - Mouth haemorrhage [Unknown]
  - Pupillary disorder [Unknown]

NARRATIVE: CASE EVENT DATE: 20231209
